FAERS Safety Report 18873880 (Version 2)
Quarter: 2021Q1

REPORT INFORMATION
  Report Type: Spontaneous
  Country: US (occurrence: US)
  Receive Date: 20210210
  Receipt Date: 20210217
  Transmission Date: 20210420
  Serious: No
  Sender: FDA-Public Use
  Company Number: US-PFIZER INC-2021116794

PATIENT
  Age: 44 Year
  Sex: Female

DRUGS (16)
  1. AFRIN [OXYMETAZOLINE] [Concomitant]
     Dosage: 0.05 %
  2. ZOMETA [Concomitant]
     Active Substance: ZOLEDRONIC ACID
     Dosage: UNK (4 MG/100ML)
  3. POTASSIUM [Concomitant]
     Active Substance: POTASSIUM
     Dosage: UNK (595(99)MG)
  4. CALCIUM [Concomitant]
     Active Substance: CALCIUM
     Dosage: UNK (500(1250))
  5. IBRANCE [Suspect]
     Active Substance: PALBOCICLIB
     Indication: BREAST CANCER FEMALE
     Dosage: 100 MG, CYCLIC (1 DAILY FOR 21 DAYS)
     Route: 048
     Dates: start: 20201022
  6. VENLAFAXINE HCL [Concomitant]
     Active Substance: VENLAFAXINE HYDROCHLORIDE
     Dosage: 100 MG
  7. ALAWAY [Concomitant]
     Active Substance: KETOTIFEN FUMARATE
     Dosage: 0.025 %
  8. ROGAINE [Concomitant]
     Active Substance: MINOXIDIL
     Dosage: 2 %
  9. MAGNESIUM [Concomitant]
     Active Substance: MAGNESIUM
     Dosage: 100 MG
  10. PROBIOTICS [Concomitant]
     Active Substance: PROBIOTICS NOS
     Dosage: UNK (100B CELL CAPSULE)
  11. IBUPROFEN. [Concomitant]
     Active Substance: IBUPROFEN
     Dosage: 200 MG
  12. MELATONIN [Concomitant]
     Active Substance: MELATONIN
     Dosage: 10 MG
  13. BIOTIN [Concomitant]
     Active Substance: BIOTIN
     Dosage: 1 MG
  14. GRANIX [Concomitant]
     Active Substance: TBO-FILGRASTIM
     Dosage: UNK
  15. ACETAMINOPHEN;HYDROCODONE [Concomitant]
     Active Substance: ACETAMINOPHEN\HYDROCODONE
     Dosage: UNK
  16. LETROZOLE. [Concomitant]
     Active Substance: LETROZOLE
     Dosage: 2.5 MG

REACTIONS (4)
  - Alopecia [Unknown]
  - Visual impairment [Unknown]
  - Fatigue [Unknown]
  - Fibromyalgia [Unknown]
